FAERS Safety Report 10173184 (Version 1)
Quarter: 2014Q2

REPORT INFORMATION
  Report Type: Spontaneous
  Country: US (occurrence: US)
  Receive Date: 20140515
  Receipt Date: 20140515
  Transmission Date: 20141212
  Serious: No
  Sender: FDA-Public Use
  Company Number: US-JNJFOC-20140420681

PATIENT
  Age: 32 Year
  Sex: Male

DRUGS (1)
  1. INVEGA SUSTENNA [Suspect]
     Indication: BIPOLAR DISORDER
     Route: 030
     Dates: start: 201308

REACTIONS (2)
  - Weight increased [Unknown]
  - Off label use [Unknown]
